FAERS Safety Report 8459517-5 (Version None)
Quarter: 2012Q2

REPORT INFORMATION
  Report Type: 
  Country: None (occurrence: None)
  Receive Date: 20120622
  Receipt Date: 20120614
  Transmission Date: 20120825
  Serious: Yes (Hospitalization)
  Sender: FDA-Public Use
  Company Number: US-JNJFOC-20120604932

PATIENT
  Sex: Male
  Weight: 51.5 kg

DRUGS (9)
  1. REMICADE [Suspect]
     Indication: INFLAMMATORY BOWEL DISEASE
     Route: 042
     Dates: start: 20100908
  2. SALMON OIL [Concomitant]
  3. METHOTREXATE [Concomitant]
  4. MOMETASONE FUROATE [Concomitant]
  5. CLEMASTINE FURARATE [Concomitant]
  6. PANTOTHENIC ACID [Concomitant]
  7. FOLIC ACID [Concomitant]
  8. OLOPATADINE HCL [Concomitant]
  9. PROBIOTICS [Concomitant]

REACTIONS (1)
  - SUBCUTANEOUS ABSCESS [None]
